FAERS Safety Report 8075623-1 (Version None)
Quarter: 2012Q1

REPORT INFORMATION
  Report Type: 
  Country: None (occurrence: None)
  Receive Date: 20120127
  Receipt Date: 20110819
  Transmission Date: 20120608
  Serious: No
  Sender: FDA-Public Use
  Company Number: US-GLAXOSMITHKLINE-A0941737A

PATIENT
  Age: 52 Year
  Sex: Female

DRUGS (2)
  1. MEPRON [Suspect]
     Indication: BABESIOSIS
     Dosage: 750MG TWICE PER DAY
     Route: 048
     Dates: start: 20060101
  2. ERYTHROMYCIN [Concomitant]

REACTIONS (1)
  - DRUG INEFFECTIVE [None]
